FAERS Safety Report 4922038-8 (Version None)
Quarter: 2006Q1

REPORT INFORMATION
  Report Type: 
  Country: None (occurrence: None)
  Receive Date: 20060224
  Receipt Date: 20060213
  Transmission Date: 20060701
  Serious: Yes (Other)
  Sender: FDA-Public Use
  Company Number: PHFR2006GB00850

PATIENT
  Age: 86 Year
  Sex: Female
  Weight: 45 kg

DRUGS (5)
  1. ANASTROZOLE [Suspect]
     Indication: BREAST CANCER
     Dosage: 1 MG, QD
     Route: 048
     Dates: start: 20030101
  2. RISEDRONIC ACID [Concomitant]
     Route: 065
  3. CALCIUM CARBONATE [Concomitant]
     Route: 065
  4. ACETAMINOPHEN [Concomitant]
     Route: 065
  5. CARBAMAZEPINE [Suspect]
     Indication: TRIGEMINAL NEURALGIA
     Dosage: 100 MG, ONE NOCTE
     Route: 048
     Dates: start: 20060124, end: 20060125

REACTIONS (2)
  - ANGIONEUROTIC OEDEMA [None]
  - DRUG INTERACTION [None]
